FAERS Safety Report 14799523 (Version 2)
Quarter: 2018Q2

REPORT INFORMATION
  Report Type: Spontaneous
  Country: BG (occurrence: BG)
  Receive Date: 20180424
  Receipt Date: 20180501
  Transmission Date: 20180711
  Serious: Yes (Other)
  Sender: FDA-Public Use
  Company Number: BG-ASTRAZENECA-2018SE53789

PATIENT
  Age: 57 Year
  Sex: Male

DRUGS (8)
  1. BETALOC ZOK [Suspect]
     Active Substance: METOPROLOL SUCCINATE
     Route: 048
  2. ACETYLSALICYLIC ACID [Concomitant]
     Active Substance: ASPIRIN
  3. EPLERENONE. [Concomitant]
     Active Substance: EPLERENONE
  4. TICAGRELOR. [Concomitant]
     Active Substance: TICAGRELOR
  5. RAMIPRIL. [Concomitant]
     Active Substance: RAMIPRIL
  6. TORASEMIDE [Concomitant]
     Active Substance: TORSEMIDE
  7. CRESTOR [Suspect]
     Active Substance: ROSUVASTATIN CALCIUM
     Route: 048
  8. METFORMINE [Concomitant]
     Active Substance: METFORMIN HYDROCHLORIDE

REACTIONS (1)
  - Angina unstable [Unknown]
